FAERS Safety Report 12228354 (Version 1)
Quarter: 2016Q2

REPORT INFORMATION
  Report Type: Spontaneous
  Country: FR (occurrence: FR)
  Receive Date: 20160401
  Receipt Date: 20160401
  Transmission Date: 20160815
  Serious: Yes (Hospitalization)
  Sender: FDA-Public Use
  Company Number: FR-ASTRAZENECA-2016SE34035

PATIENT
  Age: 51 Year
  Sex: Male
  Weight: 125 kg

DRUGS (8)
  1. RAMIPRIL. [Concomitant]
     Active Substance: RAMIPRIL
  2. BISOPROLOL [Concomitant]
     Active Substance: BISOPROLOL
  3. ALDACTONE [Concomitant]
     Active Substance: SPIRONOLACTONE
  4. KARDEGIC [Concomitant]
     Active Substance: ASPIRIN LYSINE
  5. LANTUS [Concomitant]
     Active Substance: INSULIN GLARGINE
  6. BYDUREON [Suspect]
     Active Substance: EXENATIDE
     Indication: DIABETES MELLITUS
     Route: 065
     Dates: start: 20160107
  7. GLUCOPHAGE [Concomitant]
     Active Substance: METFORMIN HYDROCHLORIDE
  8. DIAMICRON [Concomitant]
     Active Substance: GLICLAZIDE

REACTIONS (5)
  - Cardiac failure [Recovering/Resolving]
  - N-terminal prohormone brain natriuretic peptide increased [Recovering/Resolving]
  - Oedema peripheral [Recovering/Resolving]
  - Dyspnoea [Not Recovered/Not Resolved]
  - Off label use [Recovered/Resolved]

NARRATIVE: CASE EVENT DATE: 20160114
